FAERS Safety Report 5098239-8 (Version None)
Quarter: 2006Q3

REPORT INFORMATION
  Report Type: 
  Country: None (occurrence: None)
  Receive Date: 20060906
  Receipt Date: 20060524
  Transmission Date: 20061208
  Serious: Yes (Hospitalization)
  Sender: FDA-Public Use
  Company Number: FR-NOVOPROD-253678

PATIENT
  Age: 76 Year
  Sex: Male
  Weight: 94 kg

DRUGS (8)
  1. NOVONORM [Suspect]
     Indication: DIABETES MELLITUS
     Dosage: .5 MG, UNK
     Route: 048
     Dates: end: 20060418
  2. KALEORID [Concomitant]
     Dosage: 1 G, UNK
     Route: 048
  3. LASILIX [Concomitant]
     Dosage: 500 MG, UNK
     Route: 048
  4. LASILIX [Concomitant]
     Dosage: 250 MG, UNK
  5. GLUCOR [Concomitant]
     Dosage: 100 MG, BID
     Dates: end: 20060418
  6. GLUCOR [Concomitant]
     Dosage: UNK, UNK
  7. ACTOS                              /01460201/ [Concomitant]
     Dosage: 30 MG, UNK
     Route: 048
  8. AMIODARONE [Concomitant]
     Dosage: 200 MG/ 5 DAYS A  WEEK

REACTIONS (1)
  - OEDEMA [None]
